FAERS Safety Report 8016626-2 (Version None)
Quarter: 2011Q4

REPORT INFORMATION
  Report Type: 
  Country: None (occurrence: None)
  Receive Date: 20111231
  Receipt Date: 20111220
  Transmission Date: 20120403
  Serious: Yes (Other)
  Sender: FDA-Public Use
  Company Number: PHHY2011PL110707

PATIENT
  Age: 80 Year
  Sex: Female

DRUGS (2)
  1. ACETAMINOPHEN [Concomitant]
     Indication: PAIN
  2. TRAMADOL HCL [Suspect]
     Indication: PAIN

REACTIONS (5)
  - CONFUSIONAL STATE [None]
  - VISUAL IMPAIRMENT [None]
  - DELIRIUM [None]
  - POOR QUALITY SLEEP [None]
  - DISORIENTATION [None]
